FAERS Safety Report 21750887 (Version 1)
Quarter: 2022Q4

REPORT INFORMATION
  Report Type: Report from Study
  Country: US (occurrence: US)
  Receive Date: 20221219
  Receipt Date: 20221219
  Transmission Date: 20230112
  Serious: Yes (Other)
  Sender: FDA-Public Use
  Company Number: US-CELGENE-USA-20220101551

PATIENT
  Age: 52 Year
  Sex: Male
  Weight: 68.04 kg

DRUGS (21)
  1. POMALYST [Suspect]
     Active Substance: POMALIDOMIDE
     Indication: Plasma cell myeloma
     Dosage: 4 MILLIGRAM
     Route: 048
     Dates: start: 202007
  2. POMALYST [Suspect]
     Active Substance: POMALIDOMIDE
     Dosage: 3 MILLIGRAM
     Route: 048
     Dates: start: 202009
  3. POMALYST [Suspect]
     Active Substance: POMALIDOMIDE
     Dosage: 3 MILLIGRAM
     Route: 048
     Dates: start: 202105
  4. POMALYST [Suspect]
     Active Substance: POMALIDOMIDE
     Dosage: 4 MILLIGRAM
     Route: 048
  5. POMALYST [Suspect]
     Active Substance: POMALIDOMIDE
     Dosage: 3 MILLIGRAM DAILY FOR 21 DAYS THEN 7 DAYS OFF ON A 28-DAY CYCLE
     Route: 048
     Dates: start: 201702
  6. ASPIRIN [Concomitant]
     Active Substance: ASPIRIN
     Indication: Product used for unknown indication
     Dosage: FREQUENCY TEXT: NOT PROVIDED
     Route: 048
  7. CALCIUM\CHOLECALCIFEROL [Concomitant]
     Active Substance: CALCIUM\CHOLECALCIFEROL
     Indication: Product used for unknown indication
     Dosage: FREQUENCY TEXT: NOT PROVIDED?600 MG-500 MG
     Route: 048
  8. ACYCLOVIR [Concomitant]
     Active Substance: ACYCLOVIR
     Indication: Product used for unknown indication
     Dosage: FREQUENCY TEXT: NOT PROVIDED
  9. METOPROLOL TARTRATE [Concomitant]
     Active Substance: METOPROLOL TARTRATE
     Indication: Product used for unknown indication
  10. NINLARO [Concomitant]
     Active Substance: IXAZOMIB CITRATE
     Indication: Product used for unknown indication
     Dosage: FREQUENCY TEXT: NOT PROVIDED
  11. TENOFOVIR DISOPROXIL FUMARATE [Concomitant]
     Active Substance: TENOFOVIR DISOPROXIL FUMARATE
     Indication: Product used for unknown indication
  12. TENOFOVIR DISOPROXIL FUMARATE [Concomitant]
     Active Substance: TENOFOVIR DISOPROXIL FUMARATE
  13. DEXAMETHASONE [Concomitant]
     Active Substance: DEXAMETHASONE
     Indication: Product used for unknown indication
  14. XPOVIO [Concomitant]
     Active Substance: SELINEXOR
     Indication: Product used for unknown indication
     Dosage: 60MG/W
  15. ALBUTEROL SULFATE [Concomitant]
     Active Substance: ALBUTEROL SULFATE
     Indication: Product used for unknown indication
  16. CEFDINIR [Concomitant]
     Active Substance: CEFDINIR
     Indication: Product used for unknown indication
  17. METHYLPREDNISOLONE [Concomitant]
     Active Substance: METHYLPREDNISOLONE
     Indication: Product used for unknown indication
  18. RIBAVIRIN [Concomitant]
     Active Substance: RIBAVIRIN
     Indication: Product used for unknown indication
  19. LEVOFLOXACIN [Concomitant]
     Active Substance: LEVOFLOXACIN
     Indication: Product used for unknown indication
  20. OLANZAPINE [Concomitant]
     Active Substance: OLANZAPINE
     Indication: Product used for unknown indication
  21. OLANZAPINE [Concomitant]
     Active Substance: OLANZAPINE
     Indication: Product used for unknown indication

REACTIONS (1)
  - Plasma cell myeloma [Unknown]
